FAERS Safety Report 8247626-5 (Version None)
Quarter: 2012Q1

REPORT INFORMATION
  Report Type: 
  Country: None (occurrence: None)
  Receive Date: 20120330
  Receipt Date: 20120322
  Transmission Date: 20120608
  Serious: Yes (Other)
  Sender: FDA-Public Use
  Company Number: PHHY2012GB018408

PATIENT
  Sex: Female
  Weight: 70 kg

DRUGS (12)
  1. DEXAMETHASONE [Suspect]
     Dosage: 20 MG, UNK
     Route: 042
  2. PACLITAXEL [Suspect]
     Dosage: 300 MG,
     Route: 042
     Dates: start: 20110621, end: 20110705
  3. BIOTENE [Concomitant]
  4. DOMPERIDONE [Suspect]
     Dosage: 20 MG, FOUR TIMES DAILY
     Route: 048
  5. DOMPERIDONE [Suspect]
     Dosage: 20 MG, PRN
     Route: 048
  6. CHLORPHENIRAMINE MALEATE [Suspect]
     Dosage: 10 MG, UNK
     Route: 042
  7. GRANISETRON [Suspect]
     Dosage: 1 MG, BID
     Route: 048
  8. PACLITAXEL [Suspect]
     Indication: BREAST CANCER
     Dosage: 315 MG, EVERY TWO WEEKS
     Route: 042
     Dates: start: 20110524, end: 20110607
  9. RANITIDINE [Suspect]
     Dosage: 50 MG, UNK
     Route: 042
  10. PEGFILGRASTIM [Suspect]
     Dosage: 6 MG, UNK
     Route: 058
  11. DEXAMETHASONE [Suspect]
     Dosage: 4 MG, BID
     Route: 048
  12. DOCUSATE [Concomitant]
     Route: 048

REACTIONS (3)
  - FATIGUE [None]
  - CHEST DISCOMFORT [None]
  - DYSPNOEA [None]
